FAERS Safety Report 7085775-8 (Version None)
Quarter: 2010Q4

REPORT INFORMATION
  Report Type: 
  Country: None (occurrence: None)
  Receive Date: 20101001
  Receipt Date: 20100803
  Transmission Date: 20110411
  Serious: No
  Sender: FDA-Public Use
  Company Number: 1000015473

PATIENT
  Age: 70 Year
  Sex: Male

DRUGS (4)
  1. BYSTOLIC [Suspect]
     Indication: ATRIAL FIBRILLATION
     Dosage: 5 MG (5 MG, 1 IN 1 D), ORAL
     Route: 048
     Dates: start: 20100701
  2. BYSTOLIC [Suspect]
     Indication: TACHYCARDIA
     Dosage: 5 MG (5 MG, 1 IN 1 D), ORAL
     Route: 048
     Dates: start: 20100701
  3. SYNTHROID [Concomitant]
  4. CIALIS [Concomitant]

REACTIONS (7)
  - CONSTIPATION [None]
  - ERECTILE DYSFUNCTION [None]
  - FATIGUE [None]
  - GAIT DISTURBANCE [None]
  - GOUT [None]
  - PLATELET COUNT DECREASED [None]
  - PSORIASIS [None]
